FAERS Safety Report 5931437-7 (Version None)
Quarter: 2008Q4

REPORT INFORMATION
  Report Type: 
  Country: None (occurrence: None)
  Receive Date: 20081027
  Receipt Date: 20081016
  Transmission Date: 20090506
  Serious: Yes (Hospitalization)
  Sender: FDA-Public Use
  Company Number: FR-WYE-H06426308

PATIENT
  Sex: Female

DRUGS (5)
  1. INIPOMP [Suspect]
     Indication: OESOPHAGEAL ULCER
     Dosage: 40 MG (FREQUENCY UNKNOWN)
     Route: 042
     Dates: start: 20080905, end: 20080917
  2. ORNITHINE OXOGLURATE [Concomitant]
     Dosage: UNKNOWN
  3. CALCIUM GLUCONATE [Concomitant]
     Dosage: UNKNOWN
  4. AMOXICILLIN + CLAVULANATE POTASSIUM [Suspect]
     Dosage: UNKNOWN
     Dates: start: 20080905, end: 20080912
  5. AMOXICILLIN + CLAVULANATE POTASSIUM [Suspect]
     Dosage: UNKNOWN
     Dates: start: 20080915, end: 20080916

REACTIONS (2)
  - RASH [None]
  - URTICARIA [None]
